FAERS Safety Report 6235325-0 (Version None)
Quarter: 2009Q2

REPORT INFORMATION
  Report Type: 
  Country: None (occurrence: None)
  Receive Date: 20090615
  Receipt Date: 20090602
  Transmission Date: 20091009
  Serious: Yes (Hospitalization)
  Sender: FDA-Public Use
  Company Number: IPS_01307_2008

PATIENT
  Sex: Female

DRUGS (7)
  1. APO-GO (APO-GO - APOMORPHINE HYDROCHLORIDE) (NOT SPECIFIED) [Suspect]
     Indication: PARKINSON'S DISEASE
     Dosage: (5.5 MG PER HOUR [FROM 06:00 H. TO 22:00 H. DAILY] SUBCUTANEOUS)
     Route: 058
     Dates: start: 20080801
  2. APO-GO (APO-GO - APOMORPHINE HYDROCHLORIDE) (NOT SPECIFIED) [Suspect]
     Indication: PARKINSON'S DISEASE
     Dosage: (6 MG PER HOUR, SUBCUTANEOUS)
     Route: 058
  3. REMERGIL [Concomitant]
  4. CIPRAMIL /00582601/ [Concomitant]
  5. LEVOCOMP 100 [Concomitant]
  6. LEVOCOMP 100 RET [Concomitant]
  7. AZILECT /01759902/ [Concomitant]

REACTIONS (2)
  - SLEEP ATTACKS [None]
  - SOMNOLENCE [None]
